FAERS Safety Report 10538219 (Version 1)
Quarter: 2014Q4

REPORT INFORMATION
  Report Type: Spontaneous
  Country: US (occurrence: US)
  Receive Date: 20141023
  Receipt Date: 20141023
  Transmission Date: 20150529
  Serious: Yes (Other)
  Sender: FDA-Public Use
  Company Number: US-PFIZER INC-2014287319

PATIENT
  Age: 84 Year
  Sex: Female
  Weight: 64 kg

DRUGS (10)
  1. METOPROLOL [Concomitant]
     Active Substance: METOPROLOL
     Dosage: 25 MG, MORNINGS CUT IN HALF
  2. PREMARIN [Suspect]
     Active Substance: ESTROGENS, CONJUGATED
     Indication: VULVOVAGINAL DRYNESS
     Dosage: 1 G, 3X/ WEEK AT NIGHT
     Route: 067
  3. METFORMIN [Concomitant]
     Active Substance: METFORMIN HYDROCHLORIDE
     Indication: DIABETES MELLITUS
     Dosage: 250 MG, DAILY (EVERY NIGHT)
  4. STRESS B-COMPLEX [Concomitant]
     Dosage: 2 DF, DAILY
  5. ACIDOPHILUS [Concomitant]
     Active Substance: LACTOBACILLUS ACIDOPHILUS
     Dosage: UNK
  6. CRANBERRY. [Concomitant]
     Active Substance: CRANBERRY
     Indication: VITAMIN SUPPLEMENTATION
     Dosage: 2 PILLS/ DAY
  7. COQ 10 [Concomitant]
     Active Substance: UBIDECARENONE
     Dosage: 2/ DAY
  8. CINNAMON. [Concomitant]
     Active Substance: CINNAMON
     Dosage: 500 MG, 2X/DAY
  9. VITAMIN C [Concomitant]
     Active Substance: ASCORBIC ACID
     Dosage: 500 MG, 2X/DAY
  10. LISINOPRIL. [Concomitant]
     Active Substance: LISINOPRIL
     Indication: HYPERTENSION
     Dosage: 10 MG, DAILY
     Route: 048

REACTIONS (10)
  - Dehydration [Unknown]
  - Urinary tract infection [Unknown]
  - Dysuria [Not Recovered/Not Resolved]
  - Arthritis [Unknown]
  - Urine flow decreased [Unknown]
  - Blood pressure abnormal [Unknown]
  - Blood electrolytes abnormal [Unknown]
  - Vitamin D abnormal [Unknown]
  - Vaginal infection [Unknown]
  - Insomnia [Unknown]
